FAERS Safety Report 25395139 (Version 1)
Quarter: 2025Q2

REPORT INFORMATION
  Report Type: Spontaneous
  Country: NL (occurrence: NL)
  Receive Date: 20250604
  Receipt Date: 20250604
  Transmission Date: 20250716
  Serious: Yes (Life-Threatening)
  Sender: AUROBINDO
  Company Number: NL-LRB-01057012

PATIENT
  Age: 21 Year
  Sex: Male
  Weight: 100 kg

DRUGS (3)
  1. TEMAZEPAM [Suspect]
     Active Substance: TEMAZEPAM
     Indication: Product used for unknown indication
     Route: 048
     Dates: start: 20250301, end: 20250301
  2. LORAZEPAM [Suspect]
     Active Substance: LORAZEPAM
     Indication: Product used for unknown indication
     Route: 048
     Dates: start: 20250301
  3. FLUMAZENIL [Suspect]
     Active Substance: FLUMAZENIL
     Indication: Depressed level of consciousness
     Dosage: 0.2 MILLIGRAM, ONCE A DAY (ONE TIME 0.2 MG IV)
     Route: 042
     Dates: start: 20250301, end: 20250301

REACTIONS (2)
  - Aggression [Recovered/Resolved]
  - Restlessness [Recovered/Resolved]
